FAERS Safety Report 23351160 (Version 1)
Quarter: 2023Q4

REPORT INFORMATION
  Report Type: Spontaneous
  Country: US (occurrence: US)
  Receive Date: 20231229
  Receipt Date: 20231229
  Transmission Date: 20240110
  Serious: No
  Sender: FDA-Public Use
  Company Number: US-MYLANLABS-2023M1132313

PATIENT
  Sex: Female
  Weight: 67.59 kg

DRUGS (1)
  1. ESTRADIOL TRANSDERMAL SYSTEM [Suspect]
     Active Substance: ESTRADIOL
     Indication: Hormone replacement therapy
     Dosage: 0.075 MILLIGRAM, QD (0.075 MG/DAY APPLIED TWICE A WEEK)
     Route: 062

REACTIONS (4)
  - Hot flush [Unknown]
  - Night sweats [Unknown]
  - Product quality issue [Unknown]
  - Drug ineffective [Unknown]
